FAERS Safety Report 11476710 (Version 1)
Quarter: 2015Q3

REPORT INFORMATION
  Report Type: Spontaneous
  Country: US (occurrence: US)
  Receive Date: 20150909
  Receipt Date: 20150909
  Transmission Date: 20151125
  Serious: No
  Sender: FDA-Public Use
  Company Number: US-JAZZ-2014-US-009158

PATIENT
  Age: 53 Year
  Sex: Female
  Weight: 68.27 kg

DRUGS (3)
  1. XYREM [Suspect]
     Active Substance: SODIUM OXYBATE
     Indication: SLEEP DISORDER
     Dosage: 2.25 G, BID
     Route: 048
     Dates: start: 20140718, end: 20140720
  2. XYREM [Suspect]
     Active Substance: SODIUM OXYBATE
     Dosage: 3 G, BID
     Route: 048
     Dates: start: 20140721
  3. ZOLADEX [Concomitant]
     Active Substance: GOSERELIN ACETATE
     Indication: NEOPLASM MALIGNANT
     Dosage: UNK

REACTIONS (4)
  - Sedation [Recovered/Resolved]
  - Off label use [Unknown]
  - Pollakiuria [Not Recovered/Not Resolved]
  - Dizziness [Recovered/Resolved]

NARRATIVE: CASE EVENT DATE: 20140718
